FAERS Safety Report 8600402-3 (Version None)
Quarter: 2012Q3

REPORT INFORMATION
  Report Type: 
  Country: None (occurrence: None)
  Receive Date: 20120817
  Receipt Date: 20120813
  Transmission Date: 20120928
  Serious: No
  Sender: FDA-Public Use
  Company Number: US-PFIZER INC-2012156978

PATIENT
  Age: 75 Year
  Sex: Male
  Weight: 97.5 kg

DRUGS (2)
  1. TIKOSYN [Suspect]
     Indication: ATRIAL FIBRILLATION
     Dosage: 250 UG, 2X/DAY
     Route: 048
     Dates: start: 20120516
  2. CELECOXIB [Suspect]
     Indication: ARTHRITIS
     Dosage: 200 MG, 1X/DAY
     Route: 048
     Dates: start: 20120501, end: 20120619

REACTIONS (4)
  - APHTHOUS STOMATITIS [None]
  - DRUG INEFFECTIVE [None]
  - BLOOD TEST ABNORMAL [None]
  - NASAL CONGESTION [None]
